FAERS Safety Report 5887511-7 (Version None)
Quarter: 2008Q3

REPORT INFORMATION
  Report Type: 
  Country: None (occurrence: None)
  Receive Date: 20080918
  Receipt Date: 20080904
  Transmission Date: 20090109
  Serious: Yes (Other)
  Sender: FDA-Public Use
  Company Number: PHBS2007NL03114

PATIENT
  Sex: Female

DRUGS (4)
  1. SANDOSTATIN [Suspect]
     Indication: ACROMEGALY
     Dosage: 1 ML, TID
     Dates: start: 19910101
  2. SANDOSTATIN [Suspect]
     Dosage: 1 ML, BID
     Dates: start: 19930101
  3. THYRAX DUOTAB [Concomitant]
     Dosage: 125 UG/DAY
     Route: 048
     Dates: start: 19910101
  4. HYDROCORTISONE [Concomitant]
     Dosage: 10 MG, QD
     Route: 048
     Dates: start: 19910101

REACTIONS (1)
  - DRUG WITHDRAWAL HEADACHE [None]
